FAERS Safety Report 6069627-8 (Version None)
Quarter: 2009Q1

REPORT INFORMATION
  Report Type: 
  Country: None (occurrence: None)
  Receive Date: 20090209
  Receipt Date: 20090130
  Transmission Date: 20090719
  Serious: Yes (Hospitalization, Other)
  Sender: FDA-Public Use
  Company Number: JP-JNJFOC-20090105163

PATIENT
  Sex: Male

DRUGS (16)
  1. LEVAQUIN [Suspect]
     Indication: URINARY TRACT INFECTION
     Route: 048
  2. PLETAL [Suspect]
     Indication: DRUG USE FOR UNKNOWN INDICATION
     Route: 048
  3. PROMAC [Concomitant]
     Route: 048
  4. MEROPEN [Concomitant]
     Indication: PNEUMONIA
     Route: 065
  5. TAKEPRON [Concomitant]
     Route: 048
  6. PRANDOL [Concomitant]
     Route: 062
  7. ALBUMIN TANNATE [Concomitant]
     Route: 048
  8. ENTOMOL [Concomitant]
     Route: 065
  9. HEPARIN [Concomitant]
  10. HEPARIN [Concomitant]
  11. HEPARIN [Concomitant]
  12. HEPARIN [Concomitant]
  13. FUTHAN [Concomitant]
  14. EPOGIN [Concomitant]
     Route: 042
  15. DALACIN [Concomitant]
     Route: 041
  16. GLYPOSE [Concomitant]
     Route: 041

REACTIONS (2)
  - PNEUMONIA [None]
  - TORSADE DE POINTES [None]
